FAERS Safety Report 6779519-4 (Version None)
Quarter: 2010Q2

REPORT INFORMATION
  Report Type: 
  Country: None (occurrence: None)
  Receive Date: 20100618
  Receipt Date: 20100607
  Transmission Date: 20101027
  Serious: Yes (Other)
  Sender: FDA-Public Use
  Company Number: US-MYLANLABS-2010S1010246

PATIENT
  Sex: Female

DRUGS (1)
  1. NADOLOL TABLETS, USP [Suspect]
     Route: 048

REACTIONS (5)
  - DRUG EFFECT DECREASED [None]
  - GRAND MAL CONVULSION [None]
  - MALAISE [None]
  - TRANSIENT ISCHAEMIC ATTACK [None]
  - VERTIGO [None]
